FAERS Safety Report 10252005 (Version 2)
Quarter: 2014Q2

REPORT INFORMATION
  Report Type: Spontaneous
  Country: US (occurrence: US)
  Receive Date: 20140623
  Receipt Date: 20140623
  Transmission Date: 20141212
  Serious: No
  Sender: FDA-Public Use
  Company Number: US-AMGEN-USASP2014042163

PATIENT
  Age: 52 Year
  Sex: Female
  Weight: 95.1 kg

DRUGS (4)
  1. ENBREL [Suspect]
     Indication: ANKYLOSING SPONDYLITIS
     Dosage: 50 MG, QWK
     Route: 058
     Dates: start: 20130801
  2. CALCIUM + VITAMIN D                /01483701/ [Concomitant]
     Dosage: UNK UNK, BID
     Route: 048
  3. ASA [Concomitant]
     Dosage: 81 MG, QD
     Route: 048
  4. LUNESTA [Concomitant]
     Indication: INSOMNIA
     Dosage: 3 MG, QHS
     Route: 048

REACTIONS (2)
  - Dental caries [Recovered/Resolved]
  - Device failure [Recovering/Resolving]
